FAERS Safety Report 24902634 (Version 3)
Quarter: 2025Q1

REPORT INFORMATION
  Report Type: Report from Study
  Country: JP (occurrence: JP)
  Receive Date: 20250130
  Receipt Date: 20250304
  Transmission Date: 20250409
  Serious: Yes (Hospitalization, Other)
  Sender: ALEXION PHARMACEUTICALS
  Company Number: JP-ASTRAZENECA-250006877_032320_P_1

PATIENT
  Age: 47 Year
  Weight: 75 kg

DRUGS (22)
  1. ANIFROLUMAB [Suspect]
     Active Substance: ANIFROLUMAB
     Indication: Systemic lupus erythematosus
  2. ANIFROLUMAB [Suspect]
     Active Substance: ANIFROLUMAB
  3. PREDONINE [Suspect]
     Active Substance: PREDNISOLONE
     Indication: Systemic lupus erythematosus
  4. PREDONINE [Suspect]
     Active Substance: PREDNISOLONE
  5. PREDONINE [Suspect]
     Active Substance: PREDNISOLONE
  6. PREDONINE [Suspect]
     Active Substance: PREDNISOLONE
  7. PREDONINE [Suspect]
     Active Substance: PREDNISOLONE
  8. PREDONINE [Suspect]
     Active Substance: PREDNISOLONE
  9. PREDONINE [Suspect]
     Active Substance: PREDNISOLONE
  10. PROGRAF [Concomitant]
     Active Substance: TACROLIMUS
     Indication: Systemic lupus erythematosus
  11. PLAQUENIL [Concomitant]
     Active Substance: HYDROXYCHLOROQUINE SULFATE
     Indication: Systemic lupus erythematosus
  12. ROSUVASTATIN [Concomitant]
     Active Substance: ROSUVASTATIN
     Indication: Dyslipidaemia
  13. OLMESARTAN MEDOXOMIL [Concomitant]
     Active Substance: OLMESARTAN MEDOXOMIL
     Indication: Hypertension
  14. LEVOTHYROXINE [Concomitant]
     Active Substance: LEVOTHYROXINE
     Indication: Hypothyroidism
  15. VONOPRAZAN FUMARATE [Concomitant]
     Active Substance: VONOPRAZAN FUMARATE
     Indication: Prophylaxis
  16. ELDECALCITOL [Concomitant]
     Active Substance: ELDECALCITOL
     Indication: Prophylaxis
  17. SULFAMETHOXAZOLE\TRIMETHOPRIM [Concomitant]
     Active Substance: SULFAMETHOXAZOLE\TRIMETHOPRIM
     Indication: Prophylaxis
  18. SODIUM FERROUS CITRATE [Concomitant]
     Active Substance: SODIUM FERROUS CITRATE
     Indication: Iron deficiency anaemia
  19. LOXOPROFEN SODIUM [Concomitant]
     Active Substance: LOXOPROFEN SODIUM
     Indication: Systemic lupus erythematosus
  20. INDOMETHACIN FARNESIL [Concomitant]
     Active Substance: INDOMETHACIN FARNESIL
     Indication: Systemic lupus erythematosus
  21. ASCORBIC ACID\VITAMINS [Concomitant]
     Active Substance: ASCORBIC ACID\VITAMINS
     Indication: Systemic lupus erythematosus
  22. LOCOID [Concomitant]
     Active Substance: HYDROCORTISONE BUTYRATE
     Indication: Systemic lupus erythematosus

REACTIONS (4)
  - Cutaneous lupus erythematosus [Recovered/Resolved]
  - Tinea faciei [Recovered/Resolved]
  - Retinal detachment [Recovering/Resolving]
  - Off label use [Unknown]
